FAERS Safety Report 11216277 (Version 1)
Quarter: 2015Q2

REPORT INFORMATION
  Report Type: Spontaneous
  Country: US (occurrence: None)
  Receive Date: 20150623
  Receipt Date: 20150623
  Transmission Date: 20150821
  Serious: Yes (Other)
  Sender: FDA-Public Use
  Company Number: None

PATIENT
  Age: 67 Year
  Sex: Male
  Weight: 185 kg

DRUGS (2)
  1. TEFLARO [Suspect]
     Active Substance: CEFTAROLINE FOSAMIL
     Indication: ABSCESS
     Route: 042
     Dates: start: 20150616, end: 20150618
  2. TEFLARO [Suspect]
     Active Substance: CEFTAROLINE FOSAMIL
     Route: 042
     Dates: start: 20150616, end: 20150618

REACTIONS (1)
  - Vomiting [None]

NARRATIVE: CASE EVENT DATE: 20150618
